FAERS Safety Report 8839516 (Version 1)
Quarter: 2012Q4

REPORT INFORMATION
  Report Type: Spontaneous
  Country: US (occurrence: None)
  Receive Date: 20121012
  Receipt Date: 20121012
  Transmission Date: 20130627
  Serious: No
  Sender: FDA-Public Use
  Company Number: None

PATIENT
  Age: 78 Year
  Sex: Female
  Weight: 61.24 kg

DRUGS (1)
  1. VESICARE [Suspect]
     Route: 048
     Dates: start: 20120913, end: 20121004

REACTIONS (2)
  - Constipation [None]
  - Dry mouth [None]
